FAERS Safety Report 8369261-0 (Version None)
Quarter: 2012Q2

REPORT INFORMATION
  Report Type: 
  Country: None (occurrence: None)
  Receive Date: 20120518
  Receipt Date: 20120510
  Transmission Date: 20120825
  Serious: Yes (Other)
  Sender: FDA-Public Use
  Company Number: PHHY2012IT042144

PATIENT

DRUGS (3)
  1. DEFERASIROX [Suspect]
     Indication: CHELATION THERAPY
  2. DEFEROXAMINE MESYLATE [Suspect]
     Indication: CHELATION THERAPY
  3. DEFERIPRONE [Suspect]
     Indication: CHELATION THERAPY

REACTIONS (1)
  - CARDIAC SIDEROSIS [None]
